FAERS Safety Report 9424137 (Version 3)
Quarter: 2013Q3

REPORT INFORMATION
  Report Type: Report from Study
  Country: UY (occurrence: UY)
  Receive Date: 20130729
  Receipt Date: 20130821
  Transmission Date: 20140515
  Serious: Yes (Death, Hospitalization)
  Sender: FDA-Public Use
  Company Number: UY-ROCHE-1253443

PATIENT
  Sex: Male

DRUGS (1)
  1. XELODA [Suspect]
     Indication: COLON CANCER METASTATIC
     Route: 048
     Dates: start: 20130608

REACTIONS (3)
  - Death [Fatal]
  - Poisoning [Unknown]
  - Palmar-plantar erythrodysaesthesia syndrome [Unknown]
